FAERS Safety Report 21868562 (Version 3)
Quarter: 2023Q1

REPORT INFORMATION
  Report Type: Report from Study
  Country: US (occurrence: US)
  Receive Date: 20230117
  Receipt Date: 20230215
  Transmission Date: 20230417
  Serious: Yes (Other)
  Sender: FDA-Public Use
  Company Number: US-ABBVIE-4271505

PATIENT
  Age: 64 Year
  Sex: Male

DRUGS (8)
  1. IMBRUVICA [Suspect]
     Active Substance: IBRUTINIB
     Indication: Chronic lymphocytic leukaemia
     Route: 048
     Dates: start: 20220309, end: 20230109
  2. IMBRUVICA [Suspect]
     Active Substance: IBRUTINIB
     Indication: Chronic lymphocytic leukaemia
     Route: 048
     Dates: start: 20230110
  3. SILDENAFIL [Concomitant]
     Active Substance: SILDENAFIL
     Indication: Product used for unknown indication
     Dosage: 100 MG
  4. GLUCOSAMINE 1500 MG [Concomitant]
     Indication: Product used for unknown indication
     Dosage: 1500 MG
  5. NAPROXEN 220MG [Concomitant]
     Indication: Product used for unknown indication
     Dosage: 220 MG
  6. ALLOPURINOL [Concomitant]
     Active Substance: ALLOPURINOL
     Indication: Product used for unknown indication
     Dosage: 100 MG
  7. OMEPRAZOLE [Concomitant]
     Active Substance: OMEPRAZOLE
     Indication: Product used for unknown indication
     Dosage: 40 MG
  8. TURMERIC 500MG [Concomitant]
     Indication: Product used for unknown indication
     Dosage: 500 MG

REACTIONS (2)
  - Rotator cuff syndrome [Recovering/Resolving]
  - Blood uric acid abnormal [Unknown]

NARRATIVE: CASE EVENT DATE: 20230109
